FAERS Safety Report 6308568-5 (Version None)
Quarter: 2009Q3

REPORT INFORMATION
  Report Type: 
  Country: None (occurrence: None)
  Receive Date: 20090811
  Receipt Date: 20090731
  Transmission Date: 20100115
  Serious: Yes (Hospitalization, Other)
  Sender: FDA-Public Use
  Company Number: 2009AP003114

PATIENT
  Age: 44 Year
  Sex: Male

DRUGS (5)
  1. CLARITHROMYCIN [Suspect]
     Indication: COUGH
     Dosage: 500 MG; Q12H
  2. CLARITHROMYCIN [Suspect]
     Indication: HEADACHE
     Dosage: 500 MG; Q12H
  3. CLARITHROMYCIN [Suspect]
     Indication: PYREXIA
     Dosage: 500 MG; Q12H
  4. PARACETAMOL (PARACETAMOL) [Concomitant]
  5. HYPNOTICS AND SEDATIVES (HYPNOTICS AND SEDATIVES) [Concomitant]

REACTIONS (8)
  - AGITATION [None]
  - ANXIETY [None]
  - DELIRIUM [None]
  - DEPERSONALISATION [None]
  - HALLUCINATION [None]
  - PNEUMONIA VIRAL [None]
  - PSYCHIATRIC DECOMPENSATION [None]
  - TRANSAMINASES INCREASED [None]
